FAERS Safety Report 5946872-0 (Version None)
Quarter: 2008Q4

REPORT INFORMATION
  Report Type: 
  Country: None (occurrence: None)
  Receive Date: 20081107
  Receipt Date: 20081107
  Transmission Date: 20090506
  Serious: Yes (Hospitalization)
  Sender: FDA-Public Use
  Company Number: None

PATIENT
  Age: 23 Month
  Sex: Female
  Weight: 12 kg

DRUGS (1)
  1. PEG ASPARAGINASE [Suspect]
     Dosage: IV
     Route: 042

REACTIONS (4)
  - COUGH [None]
  - EYE SWELLING [None]
  - SWELLING [None]
  - VOMITING [None]
